FAERS Safety Report 8823002 (Version 1)
Quarter: 2012Q4

REPORT INFORMATION
  Report Type: 
  Country: IT (occurrence: IT)
  Receive Date: 20121003
  Receipt Date: 20121003
  Transmission Date: 20130627
  Serious: Yes (Hospitalization)
  Sender: FDA-Public Use
  Company Number: IT-ASTRAZENECA-2012SE74063

PATIENT
  Age: 61 Year
  Sex: Female

DRUGS (3)
  1. TENORETIC [Suspect]
     Indication: ESSENTIAL HYPERTENSION
     Dosage: 100 mg + 25 mg, tablets, DAILY
     Route: 048
     Dates: start: 20120101, end: 20120912
  2. LANSOX [Concomitant]
     Route: 048
  3. TIKLID [Concomitant]

REACTIONS (3)
  - Acute myocardial infarction [Unknown]
  - Chest pain [Unknown]
  - Hypokalaemia [Unknown]
